FAERS Safety Report 7276399-8 (Version None)
Quarter: 2011Q1

REPORT INFORMATION
  Report Type: 
  Country: None (occurrence: None)
  Receive Date: 20110204
  Receipt Date: 20110131
  Transmission Date: 20110831
  Serious: Yes (Hospitalization, Other)
  Sender: FDA-Public Use
  Company Number: US-PFIZER INC-US-WYE-H12175809

PATIENT
  Sex: Female

DRUGS (7)
  1. PREMARIN [Suspect]
     Indication: VULVOVAGINAL DRYNESS
  2. PREMARIN [Suspect]
     Indication: HORMONE REPLACEMENT THERAPY
     Route: 065
  3. ESTRATEST H.S. [Concomitant]
     Route: 065
  4. PREMARIN [Suspect]
     Indication: PROPHYLAXIS
  5. HYDROCHLOROTHIAZIDE [Concomitant]
     Route: 065
  6. ESTRADIOL [Suspect]
     Route: 065
  7. BISOPROLOL [Concomitant]

REACTIONS (2)
  - HEART VALVE INCOMPETENCE [None]
  - AORTIC VALVE INCOMPETENCE [None]
